FAERS Safety Report 11243578 (Version 1)
Quarter: 2015Q3

REPORT INFORMATION
  Report Type: Spontaneous
  Country: US (occurrence: None)
  Receive Date: 20150702
  Receipt Date: 20150702
  Transmission Date: 20151125
  Serious: No
  Sender: FDA-Public Use
  Company Number: None

PATIENT
  Age: 62 Year
  Sex: Female
  Weight: 64 kg

DRUGS (7)
  1. ACETAMINOPHEN. [Concomitant]
     Active Substance: ACETAMINOPHEN
  2. LEVOTHYROXINE. [Concomitant]
     Active Substance: LEVOTHYROXINE
  3. RANITIDINE [Concomitant]
     Active Substance: RANITIDINE\RANITIDINE HYDROCHLORIDE
  4. GABAPENTIN. [Concomitant]
     Active Substance: GABAPENTIN
  5. PREDNISONE. [Concomitant]
     Active Substance: PREDNISONE
  6. TRAMADOL. [Concomitant]
     Active Substance: TRAMADOL
  7. IBRUTINIB 140MG JANSSEN BIOTECH [Suspect]
     Active Substance: IBRUTINIB
     Indication: WALDENSTROM^S MACROGLOBULINAEMIA
     Dosage: 3 PILLS
     Route: 048
     Dates: start: 20140603, end: 20150701

REACTIONS (1)
  - Hot flush [None]

NARRATIVE: CASE EVENT DATE: 20140801
